FAERS Safety Report 4822690-1 (Version None)
Quarter: 2005Q4

REPORT INFORMATION
  Report Type: 
  Country: None (occurrence: None)
  Receive Date: 20051108
  Receipt Date: 20050607
  Transmission Date: 20060501
  Serious: Yes (Other)
  Sender: FDA-Public Use
  Company Number: FR-GLAXOSMITHKLINE-B0399598A

PATIENT
  Age: 24 Year
  Sex: Female

DRUGS (1)
  1. MALARONE [Suspect]
     Indication: MALARIA
     Dosage: 4TAB PER DAY
     Route: 048

REACTIONS (4)
  - CHROMATURIA [None]
  - NAUSEA [None]
  - OCULAR ICTERUS [None]
  - TRANSAMINASES INCREASED [None]
